FAERS Safety Report 4767311-1 (Version None)
Quarter: 2005Q3

REPORT INFORMATION
  Report Type: 
  Country: None (occurrence: None)
  Receive Date: 20050913
  Receipt Date: 20050901
  Transmission Date: 20060218
  Serious: Yes (Death)
  Sender: FDA-Public Use
  Company Number: NLGE000895

PATIENT
  Age: 52 Year
  Sex: Male

DRUGS (3)
  1. PAROXETINE [Suspect]
     Indication: DEPRESSION
     Dosage: 60MG PER DAY
     Route: 048
     Dates: start: 20000101
  2. CLOZAPINE [Suspect]
     Dates: start: 20021008, end: 20040921
  3. ZAPONEX [Concomitant]
     Dosage: 275MG PER DAY
     Route: 048
     Dates: start: 20040922

REACTIONS (1)
  - SUDDEN DEATH [None]
